FAERS Safety Report 11235369 (Version 5)
Quarter: 2015Q3

REPORT INFORMATION
  Report Type: Spontaneous
  Country: CA (occurrence: None)
  Receive Date: 20150630
  Receipt Date: 20150826
  Transmission Date: 20151125
  Serious: Yes (Hospitalization, Other)
  Sender: FDA-Public Use
  Company Number: CA-2015VAL000419

PATIENT
  Age: 57 Year
  Sex: Male

DRUGS (4)
  1. SANDOSTATIN LAR DEPOT [Suspect]
     Active Substance: OCTREOTIDE ACETATE
     Indication: CARCINOID TUMOUR
     Route: 030
     Dates: start: 20130424
  2. COVERSYL (PERINDOPRIL ERBUMINE) [Concomitant]
     Active Substance: PERINDOPRIL
  3. SANDOSTATIN [Suspect]
     Active Substance: OCTREOTIDE ACETATE
     Indication: CARCINOID TUMOUR
     Dosage: 50 UG, TID , SUBCUTANEOUS
     Route: 058
     Dates: start: 20130409, end: 20130423
  4. METOPROLOL TARTRATE. [Suspect]
     Active Substance: METOPROLOL TARTRATE
     Indication: PRODUCT USED FOR UNKNOWN INDICATION
     Dosage: 25 MG, QHS (EACH EVENING), ORAL
     Route: 048

REACTIONS (52)
  - Asthma [None]
  - Blood pressure increased [None]
  - Skin discolouration [None]
  - Haematochezia [None]
  - Excessive cerumen production [None]
  - Feeling of body temperature change [None]
  - Weight decreased [None]
  - Abdominal pain [None]
  - Hyperhidrosis [None]
  - Poor quality sleep [None]
  - Photophobia [None]
  - Decreased appetite [None]
  - Nausea [None]
  - Drug ineffective [None]
  - Stress [None]
  - Hot flush [None]
  - Dysuria [None]
  - Blood pressure fluctuation [None]
  - Chills [None]
  - Bowel movement irregularity [None]
  - Blood test abnormal [None]
  - Diarrhoea [None]
  - Vomiting [None]
  - Haemoglobin decreased [None]
  - Cold sweat [None]
  - Blood pressure diastolic increased [None]
  - Constipation [None]
  - Parathyroid hormone-related protein abnormal [None]
  - Arthralgia [None]
  - Pain [None]
  - Feeling abnormal [None]
  - Flatulence [None]
  - Fatigue [None]
  - Heart rate decreased [None]
  - Feeling cold [None]
  - Eye pain [None]
  - Prostatomegaly [None]
  - Vision blurred [None]
  - Abdominal discomfort [None]
  - Breakthrough pain [None]
  - Chest pain [None]
  - Urine odour abnormal [None]
  - Prostatic specific antigen increased [None]
  - Influenza like illness [None]
  - Headache [None]
  - Asthenia [None]
  - Dyspnoea [None]
  - Tinnitus [None]
  - Cardiac disorder [None]
  - Muscle spasms [None]
  - Ear discomfort [None]
  - Electrocardiogram abnormal [None]

NARRATIVE: CASE EVENT DATE: 201305
